FAERS Safety Report 8995225 (Version 1)
Quarter: 2012Q4

REPORT INFORMATION
  Report Type: Spontaneous
  Country: CN (occurrence: None)
  Receive Date: 20121221
  Receipt Date: 20121221
  Transmission Date: 20130627
  Serious: Yes (Other)
  Sender: FDA-Public Use
  Company Number: VAL_01204_2012

PATIENT
  Age: 37 Year
  Sex: Female
  Weight: 50 kg

DRUGS (1)
  1. BROMOCRIPTINE MESYLATE [Suspect]
     Indication: MENSTRUATION IRREGULAR
     Route: 048
     Dates: start: 20090527, end: 20090527

REACTIONS (5)
  - Nausea [None]
  - Vomiting [None]
  - Malaise [None]
  - Female sexual dysfunction [None]
  - Decreased activity [None]
